FAERS Safety Report 24678985 (Version 2)
Quarter: 2025Q3

REPORT INFORMATION
  Report Type: Spontaneous
  Country: JP (occurrence: JP)
  Receive Date: 20241129
  Receipt Date: 20250802
  Transmission Date: 20251021
  Serious: Yes (Death, Other)
  Sender: ALEXION PHARMACEUTICALS
  Company Number: JP-ASTRAZENECA-240132242_013120_P_1

PATIENT
  Age: 58 Year
  Sex: Female

DRUGS (2)
  1. DURVALUMAB [Suspect]
     Active Substance: DURVALUMAB
     Indication: Non-small cell lung cancer
     Dosage: 1500 MILLIGRAM, Q3W
  2. TREMELIMUMAB [Suspect]
     Active Substance: TREMELIMUMAB
     Indication: Non-small cell lung cancer
     Dosage: 75 MILLIGRAM, Q3W

REACTIONS (2)
  - Immune-mediated adverse reaction [Unknown]
  - Death [Fatal]
